FAERS Safety Report 4692052-9 (Version None)
Quarter: 2005Q2

REPORT INFORMATION
  Report Type: 
  Country: None (occurrence: None)
  Receive Date: 20050616
  Receipt Date: 20050616
  Transmission Date: 20051028
  Serious: Yes (Life-Threatening, Hospitalization)
  Sender: FDA-Public Use
  Company Number: None

PATIENT
  Age: 82 Year
  Sex: Male
  Weight: 72 kg

DRUGS (12)
  1. WARFARIN [Suspect]
     Indication: FEMUR FRACTURE
     Dosage: 4 MG QD ORAL
     Route: 048
     Dates: start: 20050513, end: 20050613
  2. WARFARIN [Suspect]
     Indication: SURGERY
     Dosage: 4 MG QD ORAL
     Route: 048
     Dates: start: 20050513, end: 20050613
  3. AVAPRO [Concomitant]
  4. DOCUSATE [Concomitant]
  5. FISH OIL [Concomitant]
  6. HYDROCHLOROTHIAZIDE [Concomitant]
  7. LIPITOR [Concomitant]
  8. MIACALCIN [Concomitant]
  9. NIFEREX [Concomitant]
  10. TERAZOSIN [Concomitant]
  11. ACETAMINOPHEN [Concomitant]
  12. LORTAB [Concomitant]

REACTIONS (5)
  - FALL [None]
  - INTERNATIONAL NORMALISED RATIO DECREASED [None]
  - MULTIPLE FRACTURES [None]
  - PROTHROMBIN TIME PROLONGED [None]
  - SUBDURAL HAEMATOMA [None]
